FAERS Safety Report 23275861 (Version 4)
Quarter: 2024Q4

REPORT INFORMATION
  Report Type: Report from Study
  Country: AU (occurrence: AU)
  Receive Date: 20231208
  Receipt Date: 20241220
  Transmission Date: 20250114
  Serious: Yes (Other)
  Sender: NOVARTIS
  Company Number: AU-002147023-NVSC2023AU216251

PATIENT
  Age: 25 Year
  Sex: Male
  Weight: 103 kg

DRUGS (2)
  1. KYMRIAH [Suspect]
     Active Substance: TISAGENLECLEUCEL
     Indication: Acute lymphocytic leukaemia
     Dosage: UNK UNK, ONCE/SINGLE
     Route: 042
     Dates: start: 20210504, end: 20210504
  2. KYMRIAH [Suspect]
     Active Substance: TISAGENLECLEUCEL
     Dosage: CAR-POSITIVE VIABLE T-CELLS, ONCE/SINGLE
     Route: 042
     Dates: start: 20240227, end: 20240227

REACTIONS (2)
  - Acute lymphocytic leukaemia recurrent [Unknown]
  - Expired product administered [Unknown]

NARRATIVE: CASE EVENT DATE: 20240227
